FAERS Safety Report 9644160 (Version 1)
Quarter: 2013Q4

REPORT INFORMATION
  Report Type: Report from Study
  Country: US (occurrence: US)
  Receive Date: 20131024
  Receipt Date: 20131024
  Transmission Date: 20140711
  Serious: No
  Sender: FDA-Public Use
  Company Number: US-B.I. PHARMACEUTICALS,INC./RIDGEFIELD-2013-BI-32589BI

PATIENT
  Sex: Male

DRUGS (2)
  1. GILOTRIF [Suspect]
     Indication: BRONCHIAL NEOPLASM
     Dosage: 40 MG
     Route: 048
     Dates: start: 20131001
  2. GILOTRIF [Suspect]
     Indication: LUNG NEOPLASM MALIGNANT

REACTIONS (3)
  - Insomnia [Unknown]
  - Fatigue [Unknown]
  - Decreased appetite [Unknown]
